FAERS Safety Report 15135720 (Version 1)
Quarter: 2018Q3

REPORT INFORMATION
  Report Type: Spontaneous
  Country: US (occurrence: US)
  Receive Date: 20180712
  Receipt Date: 20180712
  Transmission Date: 20181010
  Serious: Yes (Hospitalization, Other)
  Sender: FDA-Public Use
  Company Number: US-OTSUKA-2018_018608

PATIENT

DRUGS (1)
  1. ABILIFY [Suspect]
     Active Substance: ARIPIPRAZOLE
     Indication: PRODUCT USED FOR UNKNOWN INDICATION
     Dosage: UNK
     Route: 065
     Dates: start: 201103, end: 201801

REACTIONS (11)
  - Obsessive-compulsive disorder [Unknown]
  - Compulsive sexual behaviour [Unknown]
  - Suicidal ideation [Unknown]
  - Gambling disorder [Unknown]
  - Loss of employment [Unknown]
  - Mental disorder [Unknown]
  - Suicide attempt [Unknown]
  - Emotional distress [Unknown]
  - Economic problem [Unknown]
  - Psychiatric symptom [Unknown]
  - Personal relationship issue [Unknown]
